FAERS Safety Report 20610524 (Version 1)
Quarter: 2022Q1

REPORT INFORMATION
  Report Type: Spontaneous
  Country: CN (occurrence: None)
  Receive Date: 20220318
  Receipt Date: 20220318
  Transmission Date: 20220424
  Serious: Yes (Other)
  Sender: FDA-Public Use
  Company Number: CN-ROCHE-3050667

PATIENT
  Age: 41 Year
  Sex: Male

DRUGS (10)
  1. GAZYVA [Suspect]
     Active Substance: OBINUTUZUMAB
     Indication: Follicular lymphoma
     Dosage: OBINUTUZUMAB+LENALIDOMIDE
     Route: 042
     Dates: start: 20220120
  2. MABTHERA [Suspect]
     Active Substance: RITUXIMAB
     Indication: Follicular lymphoma
     Dosage: REDOCH
     Route: 065
     Dates: start: 20181206
  3. MABTHERA [Suspect]
     Active Substance: RITUXIMAB
     Dosage: R2
     Route: 065
     Dates: start: 201911
  4. LENALIDOMIDE [Concomitant]
     Active Substance: LENALIDOMIDE
     Indication: Follicular lymphoma
     Dosage: R2
     Dates: start: 201911
  5. LENALIDOMIDE [Concomitant]
     Active Substance: LENALIDOMIDE
     Dosage: OBINUTUZUMAB+LENALIDOMIDE
     Dates: start: 20220120
  6. ETOPOSIDE [Concomitant]
     Active Substance: ETOPOSIDE
     Indication: Follicular lymphoma
     Dosage: REDOCH
     Dates: start: 20181206
  7. CYCLOPHOSPHAMIDE [Concomitant]
     Active Substance: CYCLOPHOSPHAMIDE
     Indication: Follicular lymphoma
     Dosage: REDOCH
     Dates: start: 20181206
  8. DOXORUBICIN [Concomitant]
     Active Substance: DOXORUBICIN
     Indication: Follicular lymphoma
     Dosage: REDOCH
     Dates: start: 20181206
  9. VINCRISTINE [Concomitant]
     Active Substance: VINCRISTINE
     Indication: Follicular lymphoma
     Dosage: REDOCH
     Dates: start: 20181206
  10. DEXAMETHASONE [Concomitant]
     Active Substance: DEXAMETHASONE
     Indication: Follicular lymphoma
     Dosage: REDOCH
     Dates: start: 20181206

REACTIONS (2)
  - Deep vein thrombosis [Unknown]
  - Platelet count decreased [Unknown]
